FAERS Safety Report 7576358-1 (Version None)
Quarter: 2011Q2

REPORT INFORMATION
  Report Type: 
  Country: None (occurrence: None)
  Receive Date: 20110628
  Receipt Date: 20110610
  Transmission Date: 20111010
  Serious: Yes (Other)
  Sender: FDA-Public Use
  Company Number: US-BAYER-200833945NA

PATIENT
  Age: 29 Year
  Sex: Female

DRUGS (13)
  1. VITAMIN D [Concomitant]
     Indication: PRODUCT USED FOR UNKNOWN INDICATION
     Dosage: UNK
  2. BETASERON [Suspect]
     Indication: MULTIPLE SCLEROSIS
     Dosage: 2 MIU, QOD
     Route: 058
     Dates: start: 20080916, end: 20081111
  3. BETASERON [Suspect]
     Dosage: 8 MIU, QOD
     Route: 058
     Dates: start: 20090212, end: 20090831
  4. NEURONTIN [Concomitant]
     Indication: BURNING SENSATION
  5. LYRICA [Concomitant]
     Indication: BURNING SENSATION
     Dates: start: 20100729, end: 20100805
  6. TETRAHYDROCANNABINOL [Concomitant]
     Indication: PRODUCT USED FOR UNKNOWN INDICATION
     Dosage: UNK, UNK
  7. PRENATAL VITAMINS [Concomitant]
     Indication: PREGNANCY
     Dosage: 1 DF, QD
     Dates: start: 20110301
  8. BUSPAR [Concomitant]
     Indication: PRODUCT USED FOR UNKNOWN INDICATION
     Dosage: UNK
  9. SYNTHROID [Concomitant]
     Indication: HYPOTHYROIDISM
     Dosage: 100 MG, QD
  10. BETASERON [Suspect]
     Dosage: 8 MIU, QOD
     Route: 058
     Dates: start: 20091014, end: 20110125
  11. KEFLEX [Concomitant]
  12. ADVIL LIQUI-GELS [Concomitant]
  13. FLU VACCINATION [Concomitant]
     Dosage: UNK
     Dates: start: 20110114, end: 20110114

REACTIONS (45)
  - ABNORMAL LOSS OF WEIGHT [None]
  - FEAR [None]
  - ANXIETY [None]
  - CYSTITIS [None]
  - ASTHENIA [None]
  - INTESTINAL OBSTRUCTION [None]
  - ABDOMINAL PAIN [None]
  - PAIN IN EXTREMITY [None]
  - PAIN [None]
  - PREGNANCY [None]
  - PYREXIA [None]
  - PERIPHERAL COLDNESS [None]
  - LOSS OF CONSCIOUSNESS [None]
  - WOUND DRAINAGE [None]
  - WEIGHT DECREASED [None]
  - ORAL CANDIDIASIS [None]
  - URINARY INCONTINENCE [None]
  - CONSTIPATION [None]
  - HYPERSOMNIA [None]
  - COLD SWEAT [None]
  - FEELING HOT [None]
  - BURNING SENSATION [None]
  - VOMITING [None]
  - CHILLS [None]
  - INJURY [None]
  - SPINAL DEFORMITY [None]
  - PARAESTHESIA [None]
  - GAIT DISTURBANCE [None]
  - BACK PAIN [None]
  - NAUSEA [None]
  - VAGINAL HAEMORRHAGE [None]
  - POLLAKIURIA [None]
  - BLOOD POTASSIUM DECREASED [None]
  - HYPERHIDROSIS [None]
  - DYSURIA [None]
  - DEHYDRATION [None]
  - HYPOAESTHESIA [None]
  - APHAGIA [None]
  - DECREASED APPETITE [None]
  - GASTROINTESTINAL DISORDER [None]
  - MULTIPLE SCLEROSIS RELAPSE [None]
  - OROPHARYNGEAL BLISTERING [None]
  - HYPOMENORRHOEA [None]
  - MUSCULAR WEAKNESS [None]
  - ABASIA [None]
